FAERS Safety Report 19816869 (Version 1)
Quarter: 2021Q3

REPORT INFORMATION
  Report Type: Spontaneous
  Country: NL (occurrence: NL)
  Receive Date: 20210910
  Receipt Date: 20210910
  Transmission Date: 20211014
  Serious: Yes (Hospitalization)
  Sender: FDA-Public Use
  Company Number: NL-TEVA-2021-NL-1950393

PATIENT
  Age: 35 Year
  Sex: Female

DRUGS (17)
  1. PYRAZINAMIDE TABLET 500MG / PYRAZINAMIDUM TABLET 500MG ? NON?CURRENT D [Suspect]
     Active Substance: PYRAZINAMIDE
     Indication: TUBERCULOSIS
     Dosage: THERAPY START DATE :THERAPY END DATE:ASKU:START DATE, STRENGTH AND USE UNKNOWN
  2. RIFAMPICINE CAPSULE 300MG / RIFAMPICINE CAPSULE 300MG ? NON?CURRENT DR [Suspect]
     Active Substance: RIFAMPIN
     Indication: TUBERCULOSIS
     Dosage: FROM 29?08 TO 03?09 1DD1, THEN 2DD1:UNIT DOSE:600MILLIGRAM
     Dates: start: 20030829, end: 20031003
  3. ETHAMBUTOL (ETHAMBUTOL DIHYDROCHLORIDE) [Suspect]
     Active Substance: ETHAMBUTOL HYDROCHLORIDE
     Indication: TUBERCULOSIS
     Dosage: 200MG:FROM 29?08 TO 04?09 400MG
     Dates: start: 20030829, end: 20030906
  4. ISONIAZIDE TABLET 200MG / ISONIAZIDUM TABLET 200MG ? NON?CURRENT DRUG [Suspect]
     Active Substance: ISONIAZID
     Indication: TUBERCULOSIS
     Dosage: 200 MILLIGRAM DAILY; 1DD 200MG NON?CURRENT DRUG
     Dates: start: 20030829, end: 20030908
  5. VALPROINEZUUR TABLET MGA 500MG (ZUUR+NA?ZOUT) / DEPAKINE CHRONO TABLET [Concomitant]
     Dosage: 500MGTHERAPY END DATE :ASKU
     Dates: start: 19931012
  6. CLONAZEPAM INJOPL CONC 1MG/ML / RIVOTRIL INJVLST 1MG/ML AMPUL 1ML + SO [Concomitant]
     Dosage: 1MG/ML:AMPOULE
     Dates: start: 20030905, end: 20031003
  7. FENYTOINE NATRIUM TABLET 100MG ? NON?CURRENT DRUG / DIPHANTOINE TABLET [Concomitant]
     Dosage: THERAPY END DATE THERAPY END DATE :ASKUUNIT DOSE :100MILLIGRAM:START DATE UNKNOWN
  8. FLUCONAZOL INFVLST 2MG/ML / DIFLUCAN INFUSIEVLOEISTOF 2MG/ML FLACON 5 [Suspect]
     Active Substance: FLUCONAZOLE
     Dosage: 2X250MG:VIAL 50ML (IV) ? NON?CURRENT DRUG:UNIT DOSE:500MILLIGRAM
     Dates: start: 20030731, end: 20030808
  9. STREPTOMYCINE [Suspect]
     Active Substance: STREPTOMYCIN SULFATE
     Dosage: 1G I.M.UNIT DOSE:1000MILLIGRAM
     Dates: start: 20030912, end: 20031003
  10. CLINDAMYCINE CAPSULE 300MG / DALACIN C CAPSULE 300MG [Suspect]
     Active Substance: CLINDAMYCIN
     Dosage: 300MG
     Dates: start: 20030818, end: 20030903
  11. PREDNISOLON TABLET  5MG / PREDNISOLONUM TABLET 5MG ? NON?CURRENT DRUG [Concomitant]
     Dosage: 5MG+20MG
     Dates: start: 20030829, end: 20030902
  12. MORFINE INJVLST 10MG/ML / MORFINEHYDROCHLORIDE 1ML=10MG (EX FNA) AMP 1 [Concomitant]
     Dosage: 10MG/ ML
     Dates: start: 20030818, end: 20031014
  13. FENYTOINE INJVLST NA?ZOUT 50MG/ML / FENYTOINENATRIUM 1ML=50MG FNA AMPL [Concomitant]
     Dosage: 250MG/5ML
     Dates: start: 20030907, end: 20030909
  14. DARBEPOETINE ALFA INJVLST 100UG/ML / ARANESP   50 INJVLST 100MCG/ML WW [Concomitant]
     Dosage: 50MCGH/ML:100UG/ML / ARANESP 50 INJVLST 100MCG/ML WWSP 0.5ML
     Dates: start: 20030727, end: 20031003
  15. GRANISETRON INJVLST 1MG/ML / KYTRIL IV INJVLST 1MG/ML AMPUL 1ML ? NON? [Concomitant]
     Dosage: 1MG/ML:1ML ? NON?CURRENT DRUG
     Dates: start: 20030926, end: 20031003
  16. CIPROFLOXACINE INFVLST 2MG/ML (LACTAAT) ? NON?CURRENT DRUG / CIPROXIN [Suspect]
     Active Substance: CIPROFLOXACIN
     Dosage: 400MG  INFUSION LIQUID
     Dates: start: 20030926, end: 20030930
  17. RANITIDINE TABLET 150MG ? NON?CURRENT DRUG / RANITIDINUM TABLET 150MG [Concomitant]
     Dosage: 2 X DAILY:UNIT DOSE:300MILLIGRAM
     Dates: start: 20030902, end: 20031003

REACTIONS (1)
  - Stevens-Johnson syndrome [Recovered/Resolved]
